FAERS Safety Report 9947659 (Version 1)
Quarter: 2014Q1

REPORT INFORMATION
  Report Type: Report from Study
  Country: US (occurrence: US)
  Receive Date: 20140303
  Receipt Date: 20140303
  Transmission Date: 20141002
  Serious: No
  Sender: FDA-Public Use
  Company Number: US-ABBVIE-13P-163-1060823-00

PATIENT
  Sex: Female
  Weight: 83.99 kg

DRUGS (11)
  1. HUMIRA [Suspect]
     Indication: RHEUMATOID ARTHRITIS
     Dates: start: 2008
  2. RAMIPRIL [Suspect]
     Indication: HYPERTENSION
     Dates: start: 201210, end: 201211
  3. PROTONIX [Concomitant]
     Indication: ULCER
  4. ASPIRIN [Concomitant]
     Indication: UNEVALUABLE EVENT
  5. CALCIUM [Concomitant]
     Indication: SUPPLEMENTATION THERAPY
  6. GLUCOSAMINE [Concomitant]
     Indication: SUPPLEMENTATION THERAPY
  7. FISH OIL [Concomitant]
     Indication: SUPPLEMENTATION THERAPY
  8. PROBIOTICS [Concomitant]
     Indication: SUPPLEMENTATION THERAPY
  9. NASANEX [Concomitant]
     Indication: HYPERSENSITIVITY
  10. BENADRYL [Concomitant]
     Indication: HYPERSENSITIVITY
  11. ZYRTEC [Concomitant]
     Indication: HYPERSENSITIVITY

REACTIONS (3)
  - Cough [Not Recovered/Not Resolved]
  - Laryngitis [Not Recovered/Not Resolved]
  - Sinusitis [Not Recovered/Not Resolved]
